FAERS Safety Report 5056771-7 (Version None)
Quarter: 2006Q2

REPORT INFORMATION
  Report Type: 
  Country: None (occurrence: None)
  Receive Date: 20060619
  Receipt Date: 20050502
  Transmission Date: 20061013
  Serious: Yes (Death, Other)
  Sender: FDA-Public Use
  Company Number: US-2005-006883

PATIENT
  Age: 67 Year
  Sex: Male

DRUGS (2)
  1. FLUDARA [Suspect]
     Indication: CHRONIC LYMPHOCYTIC LEUKAEMIA
     Dosage: 25MG/M2X2 DAYS, 2 CYCLES, INTRAVENOUS
     Route: 042
     Dates: start: 20050101, end: 20050301
  2. RITUXIMAB (RITUXIMAB) [Suspect]
     Indication: CHRONIC LYMPHOCYTIC LEUKAEMIA
     Dosage: 2 CYCLES, INTRAVENOUS
     Route: 042
     Dates: start: 20050101, end: 20050301

REACTIONS (3)
  - DEPRESSION [None]
  - MALIGNANT PLEURAL EFFUSION [None]
  - PERIPHERAL MOTOR NEUROPATHY [None]
